FAERS Safety Report 7355952-7 (Version None)
Quarter: 2011Q1

REPORT INFORMATION
  Report Type: 
  Country: None (occurrence: None)
  Receive Date: 20110310
  Receipt Date: 20110310
  Transmission Date: 20110831
  Serious: Yes (Death)
  Sender: FDA-Public Use
  Company Number: None

PATIENT
  Age: 60 Year
  Sex: Male

DRUGS (1)
  1. ERLOTINIB [Suspect]
     Indication: PANCREATIC CARCINOMA
     Dosage: 100 MG EVERY DAY PO
     Route: 048
     Dates: start: 20101105, end: 20101109

REACTIONS (7)
  - HAEMORRHAGE [None]
  - INFLAMMATION [None]
  - RASH [None]
  - INFECTION [None]
  - DYSPNOEA [None]
  - ACUTE RESPIRATORY DISTRESS SYNDROME [None]
  - PULMONARY EMBOLISM [None]
